FAERS Safety Report 23390738 (Version 1)
Quarter: 2024Q1

REPORT INFORMATION
  Report Type: Report from Study
  Country: US (occurrence: US)
  Receive Date: 20240111
  Receipt Date: 20240111
  Transmission Date: 20240409
  Serious: Yes (Other)
  Sender: FDA-Public Use
  Company Number: US-E2BLSMVVAL-CLI/USA/23/0032329

PATIENT
  Age: 39 Year
  Sex: Female
  Weight: 64 kg

DRUGS (1)
  1. LURASIDONE HYDROCHLORIDE [Suspect]
     Active Substance: LURASIDONE HYDROCHLORIDE
     Indication: Product used for unknown indication

REACTIONS (2)
  - Exposure during pregnancy [Unknown]
  - Hypertension [Unknown]
